FAERS Safety Report 4529957-5 (Version None)
Quarter: 2004Q4

REPORT INFORMATION
  Report Type: 
  Country: None (occurrence: None)
  Receive Date: 20041215
  Receipt Date: 20041215
  Transmission Date: 20050328
  Serious: Yes (Life-Threatening)
  Sender: FDA-Public Use
  Company Number: None

PATIENT
  Age: 76 Year
  Sex: Female

DRUGS (13)
  1. THALIDOMIDE` [Suspect]
     Indication: GASTROINTESTINAL HAEMORRHAGE
     Dosage: INITIAL , 400 MG PO DAILY, THEN 100 MG PO DAILY
     Route: 048
     Dates: start: 20041112, end: 20041129
  2. PREDNISONE [Concomitant]
  3. CELLCEPT [Concomitant]
  4. PREVACID [Concomitant]
  5. LECTULOSE [Concomitant]
  6. LASIX [Concomitant]
  7. VENOFER [Concomitant]
  8. ARANESP [Concomitant]
  9. POTASSIUM CHLORIDE [Concomitant]
  10. VIT K [Concomitant]
  11. CLINDAMYCIN HCL [Concomitant]
  12. CALTRATE [Concomitant]
  13. B12 [Concomitant]

REACTIONS (1)
  - DEEP VEIN THROMBOSIS [None]
